FAERS Safety Report 5818444-X (Version None)
Quarter: 2008Q3

REPORT INFORMATION
  Report Type: 
  Country: None (occurrence: None)
  Receive Date: 20080718
  Receipt Date: 20080703
  Transmission Date: 20090109
  Serious: Yes (Life-Threatening, Hospitalization)
  Sender: FDA-Public Use
  Company Number: 2008PV036042

PATIENT
  Age: 62 Year
  Sex: Female
  Weight: 132.4503 kg

DRUGS (16)
  1. SYMLIN [Suspect]
     Indication: DIABETES MELLITUS
     Dosage: ; SC
     Route: 058
     Dates: end: 20080423
  2. BYETTA [Concomitant]
  3. LANTUS [Concomitant]
  4. NOVOLOG [Concomitant]
  5. AVINZA [Concomitant]
  6. CALCIUM [Concomitant]
  7. CYMBALTA [Concomitant]
  8. PRILOSEC [Concomitant]
  9. SIMVASTATIN [Concomitant]
  10. XANAX [Concomitant]
  11. PROVENTIL-HFA [Concomitant]
  12. NITROGLYCERIN [Concomitant]
  13. LASIX [Concomitant]
  14. VITAMIN D [Concomitant]
  15. ZYPREXA [Concomitant]
  16. MULTI-VITAMIN [Concomitant]

REACTIONS (18)
  - ACUTE MYOCARDIAL INFARCTION [None]
  - BLOOD ALCOHOL INCREASED [None]
  - CULTURE URINE POSITIVE [None]
  - DEHYDRATION [None]
  - DRUG SCREEN POSITIVE [None]
  - HEPATITIS TOXIC [None]
  - HYPOPHAGIA [None]
  - KLEBSIELLA INFECTION [None]
  - METABOLIC DISORDER [None]
  - METABOLIC ENCEPHALOPATHY [None]
  - MULTI-ORGAN FAILURE [None]
  - RENAL FAILURE ACUTE [None]
  - RHABDOMYOLYSIS [None]
  - SEPSIS [None]
  - SHOCK [None]
  - SKIN DISORDER [None]
  - SLEEP APNOEA SYNDROME [None]
  - VIRAL INFECTION [None]
